FAERS Safety Report 12817241 (Version 1)
Quarter: 2016Q4

REPORT INFORMATION
  Report Type: Spontaneous
  Country: US (occurrence: US)
  Receive Date: 20161006
  Receipt Date: 20161006
  Transmission Date: 20170207
  Serious: Yes (Other)
  Sender: FDA-Public Use
  Company Number: US-ROCHE-1839040

PATIENT

DRUGS (7)
  1. 5-FLUOROURACIL [Concomitant]
     Active Substance: FLUOROURACIL
     Dosage: FOLFIRI
     Route: 065
  2. LEUCOVORIN. [Concomitant]
     Active Substance: LEUCOVORIN
     Dosage: FOLFIRI
     Route: 065
  3. OXALIPLATIN. [Concomitant]
     Active Substance: OXALIPLATIN
     Dosage: FOLFOX
     Route: 065
  4. AVASTIN [Suspect]
     Active Substance: BEVACIZUMAB
     Indication: PRODUCT USED FOR UNKNOWN INDICATION
     Route: 065
  5. IRINOTECAN [Concomitant]
     Active Substance: IRINOTECAN
     Dosage: FOLFIRI
     Route: 065
  6. 5-FLUOROURACIL [Concomitant]
     Active Substance: FLUOROURACIL
     Dosage: FOLFOX
     Route: 065
  7. LEUCOVORIN. [Concomitant]
     Active Substance: LEUCOVORIN
     Dosage: FOLFOX
     Route: 065

REACTIONS (1)
  - Metastases to liver [Unknown]
